FAERS Safety Report 8094240-0 (Version None)
Quarter: 2012Q1

REPORT INFORMATION
  Report Type: 
  Country: None (occurrence: None)
  Receive Date: 20120131
  Receipt Date: 20120123
  Transmission Date: 20120608
  Serious: Yes (Other)
  Sender: FDA-Public Use
  Company Number: BR-PFIZER INC-2012018205

PATIENT
  Age: 55 Year
  Sex: Female

DRUGS (5)
  1. XALATAN [Suspect]
     Indication: INTRAOCULAR PRESSURE DECREASED
  2. OMEPRAZOLE [Concomitant]
     Indication: ABDOMINAL PAIN UPPER
     Dosage: 1 DF, 1X/DAY
     Dates: start: 20010101
  3. TIMOLOL [Concomitant]
     Indication: GLAUCOMA
  4. XALATAN [Suspect]
     Indication: GLAUCOMA
     Dosage: 3 UG (2 DROPS), 2X/DAY
     Route: 047
     Dates: start: 20060123, end: 20111201
  5. TIMOLOL [Concomitant]
     Indication: INTRAOCULAR PRESSURE DECREASED
     Dosage: 2 GTT, 2X/DAY
     Dates: start: 20090123

REACTIONS (3)
  - BLINDNESS [None]
  - OPTIC ATROPHY [None]
  - HYPOACUSIS [None]
